FAERS Safety Report 16711258 (Version 2)
Quarter: 2019Q3

REPORT INFORMATION
  Report Type: Report from Study
  Country: US (occurrence: US)
  Receive Date: 20190816
  Receipt Date: 20190919
  Transmission Date: 20191004
  Serious: No
  Sender: FDA-Public Use
  Company Number: US-JNJFOC-20190812993

PATIENT
  Age: 70 Year
  Sex: Male
  Weight: 79.45 kg

DRUGS (1)
  1. SPRAVATO [Suspect]
     Active Substance: ESKETAMINE
     Indication: DEPRESSION
     Dates: start: 20190806

REACTIONS (1)
  - Body temperature increased [Recovered/Resolved with Sequelae]

NARRATIVE: CASE EVENT DATE: 20190808
